FAERS Safety Report 5704202-3 (Version None)
Quarter: 2008Q2

REPORT INFORMATION
  Report Type: 
  Country: None (occurrence: None)
  Receive Date: 20080409
  Receipt Date: 20080328
  Transmission Date: 20081010
  Serious: Yes (Life-Threatening)
  Sender: FDA-Public Use
  Company Number: 18659

PATIENT
  Age: 72 Year
  Sex: Female
  Weight: 80 kg

DRUGS (11)
  1. METHOTREXATE [Suspect]
     Dosage: 7.5 MG WEEKLY;
     Dates: start: 20071201
  2. ENBREL [Suspect]
     Dates: end: 20070101
  3. PREDNISOLONE [Suspect]
     Dates: end: 20080121
  4. ASPIRIN [Concomitant]
  5. ATENOLOL [Concomitant]
  6. FUROSEMIDE [Concomitant]
  7. GLICLAZIDE [Concomitant]
  8. MELOXICAM [Concomitant]
  9. OMEPRAZOLE [Concomitant]
  10. ROSIGLITAZONE [Concomitant]
  11. ROSUVASTATIN [Concomitant]

REACTIONS (4)
  - BETA HAEMOLYTIC STREPTOCOCCAL INFECTION [None]
  - CONTINUOUS HAEMODIAFILTRATION [None]
  - MULTI-ORGAN FAILURE [None]
  - STREPTOCOCCAL SEPSIS [None]
